FAERS Safety Report 5234041-1 (Version None)
Quarter: 2007Q1

REPORT INFORMATION
  Report Type: 
  Country: None (occurrence: None)
  Receive Date: 20070208
  Receipt Date: 20070207
  Transmission Date: 20070707
  Serious: Yes (Hospitalization)
  Sender: FDA-Public Use
  Company Number: ES-BOEHRINGER INGELHEIM PHARMACEUTICALS, INC.-2007-ES-00013ES

PATIENT
  Sex: Male
  Weight: 57.5 kg

DRUGS (4)
  1. APTIVUS [Suspect]
     Indication: HIV INFECTION
     Dosage: 1000 MG TIPRANAVIR + 400 MG RITONAVIR
     Route: 048
     Dates: start: 20040218
  2. VIREAD [Concomitant]
     Indication: HIV INFECTION
     Route: 048
     Dates: start: 20040303
  3. EPIVIR [Concomitant]
     Indication: HIV INFECTION
     Route: 048
     Dates: start: 20020107
  4. SUSTIVA [Concomitant]
     Indication: HIV INFECTION
     Route: 048
     Dates: start: 20040218

REACTIONS (2)
  - HERPES VIRUS INFECTION [None]
  - PNEUMONIA [None]
